FAERS Safety Report 5094383-X (Version None)
Quarter: 2006Q3

REPORT INFORMATION
  Report Type: 
  Country: None (occurrence: None)
  Receive Date: 20060831
  Receipt Date: 20060823
  Transmission Date: 20061208
  Serious: Yes (Other)
  Sender: FDA-Public Use
  Company Number: JP-BOEHRINGER INGELHEIM PHARMACEUTICALS, INC.-2006-BP-09880NB

PATIENT
  Sex: Female
  Weight: 43 kg

DRUGS (4)
  1. BI-SIFROL TABLETS [Suspect]
     Indication: PARKINSON'S DISEASE
     Route: 048
     Dates: start: 20050602
  2. SYMMETREL [Concomitant]
     Indication: PARKINSON'S DISEASE
     Route: 048
     Dates: start: 20050528
  3. BASEN OD (VOGLIBOSE) [Concomitant]
     Indication: DIABETES MELLITUS
     Route: 048
     Dates: start: 20050528
  4. AMARYL [Concomitant]
     Indication: DIABETES MELLITUS
     Route: 048
     Dates: start: 20050528

REACTIONS (3)
  - HALLUCINATION [None]
  - NEUROLEPTIC MALIGNANT SYNDROME [None]
  - SOMNOLENCE [None]
